FAERS Safety Report 6004767-0 (Version None)
Quarter: 2008Q4

REPORT INFORMATION
  Report Type: 
  Country: None (occurrence: None)
  Receive Date: 20081216
  Receipt Date: 20081208
  Transmission Date: 20090506
  Serious: Yes (Death, Hospitalization, Disabling)
  Sender: FDA-Public Use
  Company Number: JP-ABBOTT-08P-087-0482466-00

PATIENT
  Sex: Male

DRUGS (2)
  1. LEUPROLIDE ACETATE [Suspect]
     Indication: PROSTATE CANCER STAGE III
     Route: 058
     Dates: start: 20060406, end: 20070620
  2. LEUPROLIDE ACETATE [Suspect]
     Route: 058
     Dates: start: 20071114, end: 20071114

REACTIONS (3)
  - CEREBRAL INFARCTION [None]
  - DIZZINESS [None]
  - HEMIPLEGIA [None]
